FAERS Safety Report 12739976 (Version 2)
Quarter: 2016Q4

REPORT INFORMATION
  Report Type: Spontaneous
  Country: LB (occurrence: LB)
  Receive Date: 20160913
  Receipt Date: 20161017
  Transmission Date: 20170207
  Serious: Yes (Hospitalization, Other)
  Sender: FDA-Public Use
  Company Number: PHHY2016LB125330

PATIENT
  Age: 4 Year
  Sex: Female

DRUGS (4)
  1. OSPAMOX [Concomitant]
     Active Substance: AMOXICILLIN
     Indication: PRODUCT USED FOR UNKNOWN INDICATION
     Dosage: 1 DF, BID
     Route: 048
  2. EXJADE [Suspect]
     Active Substance: DEFERASIROX
     Indication: SICKLE CELL ANAEMIA
     Dosage: 350 MG, QD
     Route: 048
     Dates: start: 20131227, end: 20160904
  3. ACIDO FOLICO//FOLIC ACID [Concomitant]
     Active Substance: FOLIC ACID
     Indication: PRODUCT USED FOR UNKNOWN INDICATION
     Dosage: 1 DF, BID
     Route: 048
  4. ACETAMOL//PARACETAMOL [Concomitant]
     Indication: PRODUCT USED FOR UNKNOWN INDICATION
     Route: 065

REACTIONS (12)
  - Hepatosplenomegaly [Recovering/Resolving]
  - Decreased appetite [Unknown]
  - Abdominal pain [Unknown]
  - Hepatitis [Recovering/Resolving]
  - Nausea [Unknown]
  - Jaundice [Recovering/Resolving]
  - Chromaturia [Unknown]
  - Pyrexia [Unknown]
  - Fatigue [Unknown]
  - Serum ferritin increased [Unknown]
  - Ascites [Unknown]
  - Escherichia urinary tract infection [Unknown]

NARRATIVE: CASE EVENT DATE: 20160903
